FAERS Safety Report 6059836-6 (Version None)
Quarter: 2009Q1

REPORT INFORMATION
  Report Type: 
  Country: None (occurrence: None)
  Receive Date: 20090130
  Receipt Date: 20081119
  Transmission Date: 20090719
  Serious: No
  Sender: FDA-Public Use
  Company Number: US-ABBOTT-08P-163-0489045-00

PATIENT
  Sex: Male

DRUGS (1)
  1. LUPRON [Suspect]
     Indication: PROSTATE CANCER

REACTIONS (6)
  - DISCOMFORT [None]
  - ERECTILE DYSFUNCTION [None]
  - HYPERHIDROSIS [None]
  - LOSS OF LIBIDO [None]
  - PELVIC DISCOMFORT [None]
  - PELVIC PAIN [None]
